FAERS Safety Report 22647843 (Version 1)
Quarter: 2023Q2

REPORT INFORMATION
  Report Type: Spontaneous
  Country: PL (occurrence: None)
  Receive Date: 20230628
  Receipt Date: 20230628
  Transmission Date: 20230722
  Serious: Yes (Other)
  Sender: FDA-Public Use
  Company Number: 2023A146188

PATIENT
  Sex: Male

DRUGS (2)
  1. ACALABRUTINIB [Suspect]
     Active Substance: ACALABRUTINIB
     Dosage: UNKNOWN
     Route: 048
  2. NITRENDIPINE [Concomitant]
     Active Substance: NITRENDIPINE
     Dosage: AS NEEDED

REACTIONS (6)
  - Blood pressure increased [Unknown]
  - Epistaxis [Unknown]
  - Sinus bradycardia [Unknown]
  - Heart rate irregular [Unknown]
  - Lymphadenopathy [Unknown]
  - Haemoglobin decreased [Unknown]
